FAERS Safety Report 10663892 (Version 1)
Quarter: 2014Q4

REPORT INFORMATION
  Report Type: Spontaneous
  Country: FR (occurrence: FR)
  Receive Date: 20141219
  Receipt Date: 20141219
  Transmission Date: 20150529
  Serious: Yes (Other)
  Sender: FDA-Public Use
  Company Number: FR-CIPLA LTD.-2014FR02500

PATIENT

DRUGS (5)
  1. CISPLATIN. [Suspect]
     Active Substance: CISPLATIN
     Indication: NEOPLASM
     Dosage: 75 MG/M2
  2. PACLITAXEL. [Suspect]
     Active Substance: PACLITAXEL
     Indication: NEOPLASM
     Dosage: 175 MG/M2 OR 200 MG/M2
  3. CARBOPLATIN. [Suspect]
     Active Substance: CARBOPLATIN
     Indication: NEOPLASM
     Dosage: AREA UNDER THE CURVE (AUC) 5 MG/ML/MIN (AUC5) OR AUC6
  4. OMBRABULIN [Suspect]
     Active Substance: OMBRABULIN
     Indication: NEOPLASM
     Dosage: 75 MG/M2
  5. DOCETAXEL. [Suspect]
     Active Substance: DOCETAXEL
     Indication: NEOPLASM
     Dosage: 75 MG/M2

REACTIONS (1)
  - Pulmonary embolism [Unknown]
